FAERS Safety Report 5056732-8 (Version None)
Quarter: 2006Q2

REPORT INFORMATION
  Report Type: 
  Country: None (occurrence: None)
  Receive Date: 20060616
  Receipt Date: 20060425
  Transmission Date: 20061013
  Serious: No
  Sender: FDA-Public Use
  Company Number: 2006US000918

PATIENT
  Age: 47 Year
  Sex: Female

DRUGS (2)
  1. VESICARE [Suspect]
     Indication: DRUG USE FOR UNKNOWN INDICATION
  2. FENTANYL TRANSDERMAL SYSTEM [Suspect]
     Dosage: TRANSDERMAL
     Route: 062

REACTIONS (1)
  - RASH PRURITIC [None]
